FAERS Safety Report 6172540-9 (Version None)
Quarter: 2009Q2

REPORT INFORMATION
  Report Type: 
  Country: None (occurrence: None)
  Receive Date: 20090427
  Receipt Date: 20090413
  Transmission Date: 20091009
  Serious: Yes (Death, Other)
  Sender: FDA-Public Use
  Company Number: ADE2009-0574

PATIENT
  Age: 66 Year
  Sex: Male

DRUGS (1)
  1. METFORMIN HCL [Suspect]
     Indication: TYPE 2 DIABETES MELLITUS
     Dosage: 850MG, BID

REACTIONS (4)
  - ASCITES [None]
  - DYSPNOEA [None]
  - HEPATIC FAILURE [None]
  - LACTIC ACIDOSIS [None]
